FAERS Safety Report 24137552 (Version 1)
Quarter: 2024Q3

REPORT INFORMATION
  Report Type: Spontaneous
  Country: GB (occurrence: GB)
  Receive Date: 20240725
  Receipt Date: 20240725
  Transmission Date: 20241017
  Serious: Yes (Disabling, Other)
  Sender: AMGEN
  Company Number: GB-AMGEN-GBRSP2024145246

PATIENT
  Age: 48 Year
  Sex: Male
  Weight: 86 kg

DRUGS (1)
  1. ADALIMUMAB [Suspect]
     Active Substance: ADALIMUMAB\ISOPROPYL ALCOHOL
     Indication: Rheumatoid arthritis
     Dosage: UNK
     Route: 065
     Dates: start: 20240507, end: 20240603

REACTIONS (1)
  - Skin erosion [Unknown]

NARRATIVE: CASE EVENT DATE: 20240606
